FAERS Safety Report 9736809 (Version 1)
Quarter: 2013Q4

REPORT INFORMATION
  Report Type: Spontaneous
  Country: US (occurrence: US)
  Receive Date: 20131206
  Receipt Date: 20131206
  Transmission Date: 20140711
  Serious: No
  Sender: FDA-Public Use
  Company Number: US-BIOGENIDEC-2013BI090521

PATIENT
  Sex: Female

DRUGS (1)
  1. TECFIDERA [Suspect]
     Indication: MULTIPLE SCLEROSIS

REACTIONS (4)
  - Gastrooesophageal reflux disease [Unknown]
  - Prescribed underdose [Unknown]
  - Gastrointestinal disorder [Unknown]
  - Abdominal pain [Unknown]
